FAERS Safety Report 11995277 (Version 3)
Quarter: 2017Q4

REPORT INFORMATION
  Report Type: Spontaneous
  Country: FR (occurrence: FR)
  Receive Date: 20160203
  Receipt Date: 20171219
  Transmission Date: 20180320
  Serious: Yes (Death, Hospitalization)
  Sender: FDA-Public Use
  Company Number: FR-009507513-1602FRA001149

PATIENT
  Age: 58 Year
  Sex: Male
  Weight: 53 kg

DRUGS (4)
  1. EMEND [Interacting]
     Active Substance: APREPITANT
     Dosage: 80 MG,QD
     Route: 048
     Dates: start: 20160105
  2. IFOSFAMIDE. [Interacting]
     Active Substance: IFOSFAMIDE
     Indication: RHABDOMYOSARCOMA
     Dosage: 3975 MG, QD, DAY 1, DAY2 AND DAY 3
     Route: 041
     Dates: start: 20151215
  3. IFOSFAMIDE. [Interacting]
     Active Substance: IFOSFAMIDE
     Dosage: 3850 MG, QD, DAY 1 ,DAY 2 AND DAY 3
     Route: 041
     Dates: start: 20160105
  4. EMEND [Suspect]
     Active Substance: APREPITANT
     Indication: PROPHYLAXIS OF NAUSEA AND VOMITING
     Dosage: 80 MG, QD
     Route: 048
     Dates: start: 20151215

REACTIONS (1)
  - Encephalopathy [Fatal]

NARRATIVE: CASE EVENT DATE: 20160107
